FAERS Safety Report 11382008 (Version 1)
Quarter: 2015Q3

REPORT INFORMATION
  Report Type: Spontaneous
  Country: US (occurrence: US)
  Receive Date: 20150811
  Receipt Date: 20150811
  Transmission Date: 20151125
  Serious: No
  Sender: FDA-Public Use
  Company Number: US-ELI_LILLY_AND_COMPANY-US200910003280

PATIENT
  Age: 64 Year
  Sex: Male

DRUGS (6)
  1. METFORMIN [Concomitant]
     Active Substance: METFORMIN HYDROCHLORIDE
     Dosage: UNK, UNKNOWN
     Route: 065
  2. NIASPAN [Concomitant]
     Active Substance: NIACIN
     Dosage: UNK, UNKNOWN
     Route: 065
  3. CIALIS [Suspect]
     Active Substance: TADALAFIL
     Dosage: UNK, WEEKLY (1/W)
     Route: 065
     Dates: start: 200804
  4. DIOVAN [Concomitant]
     Active Substance: VALSARTAN
     Dosage: UNK, UNKNOWN
     Route: 065
  5. TOPROL XL [Concomitant]
     Active Substance: METOPROLOL SUCCINATE
     Dosage: UNK, UNKNOWN
     Route: 065
  6. PREVACID [Concomitant]
     Active Substance: LANSOPRAZOLE
     Dosage: UNK, UNKNOWN
     Route: 065

REACTIONS (4)
  - Feeling abnormal [Unknown]
  - Dizziness [Unknown]
  - Intentional product misuse [Unknown]
  - Headache [Unknown]

NARRATIVE: CASE EVENT DATE: 200804
